FAERS Safety Report 5533598-0 (Version None)
Quarter: 2007Q4

REPORT INFORMATION
  Report Type: 
  Country: None (occurrence: None)
  Receive Date: 20071204
  Receipt Date: 20071122
  Transmission Date: 20080405
  Serious: Yes (Hospitalization)
  Sender: FDA-Public Use
  Company Number: US-KINGPHARMUSA00001-K200701514

PATIENT

DRUGS (7)
  1. ALTACE [Suspect]
     Route: 048
     Dates: end: 20070602
  2. ARIMIDEX [Suspect]
     Indication: BREAST CANCER IN SITU
     Route: 048
     Dates: start: 20060801, end: 20070602
  3. ABILIFY [Suspect]
     Indication: SCHIZOPHRENIA
     Dosage: 10 MG, BID
     Route: 048
     Dates: start: 20070301, end: 20070602
  4. RIVOTRIL [Suspect]
     Indication: MYOCLONUS
     Route: 048
     Dates: start: 20060901
  5. PREVISCAN /00789001/ [Suspect]
     Indication: VENOUS THROMBOSIS
     Dosage: .75 DF, QD
     Route: 048
     Dates: start: 20060601, end: 20070620
  6. HERCEPTIN [Suspect]
     Indication: BREAST CANCER IN SITU
     Dosage: 1 DF, QMON
     Route: 042
     Dates: start: 20060801, end: 20070226
  7. ZYPREXA [Concomitant]
     Indication: SCHIZOPHRENIA
     Dates: end: 20070301

REACTIONS (5)
  - BONE MARROW FAILURE [None]
  - LEUKOPENIA [None]
  - PANCYTOPENIA [None]
  - PURPURA [None]
  - THROMBOCYTOPENIA [None]
